FAERS Safety Report 25663111 (Version 1)
Quarter: 2025Q3

REPORT INFORMATION
  Report Type: Spontaneous
  Country: US (occurrence: US)
  Receive Date: 20250811
  Receipt Date: 20250811
  Transmission Date: 20251020
  Serious: Yes (Other)
  Sender: ASPIRO PHARMA
  Company Number: US-AMAROX PHARMA-ASP2025US04558

PATIENT
  Age: 40 Year
  Sex: Male

DRUGS (3)
  1. VORICONAZOLE [Suspect]
     Active Substance: VORICONAZOLE
     Indication: Pneumonia fungal
     Route: 065
  2. VORICONAZOLE [Suspect]
     Active Substance: VORICONAZOLE
     Route: 065
  3. PACLITAXEL [Concomitant]
     Active Substance: PACLITAXEL
     Indication: Angiosarcoma metastatic
     Route: 065

REACTIONS (2)
  - Treatment noncompliance [Unknown]
  - Treatment failure [Unknown]
